FAERS Safety Report 10432291 (Version 1)
Quarter: 2014Q3

REPORT INFORMATION
  Report Type: Spontaneous
  Country: US (occurrence: None)
  Receive Date: 20140904
  Receipt Date: 20140904
  Transmission Date: 20150326
  Serious: Yes (Disabling)
  Sender: FDA-Public Use
  Company Number: None

PATIENT
  Age: 25 Year
  Sex: Female
  Weight: 51.26 kg

DRUGS (1)
  1. CLINDESSE [Suspect]
     Active Substance: CLINDAMYCIN PHOSPHATE
     Indication: VAGINITIS BACTERIAL
     Route: 048
     Dates: start: 20061115, end: 20061215

REACTIONS (1)
  - Colitis ulcerative [None]

NARRATIVE: CASE EVENT DATE: 20061115
